FAERS Safety Report 5165259-4 (Version None)
Quarter: 2006Q4

REPORT INFORMATION
  Report Type: 
  Country: None (occurrence: None)
  Receive Date: 20061124
  Receipt Date: 20061114
  Transmission Date: 20070319
  Serious: Yes (Other)
  Sender: FDA-Public Use
  Company Number: 2006141418

PATIENT
  Age: 46 Year
  Sex: Male

DRUGS (1)
  1. FRAGMIN [Suspect]
     Indication: THROMBOSIS PROPHYLAXIS
     Dosage: 10000 I.U. (5000 I.U., 2 IN 1 D)
     Dates: start: 20060101, end: 20061101

REACTIONS (1)
  - THROMBOCYTHAEMIA [None]
